FAERS Safety Report 4330481-3 (Version None)
Quarter: 2004Q1

REPORT INFORMATION
  Report Type: 
  Country: None (occurrence: None)
  Receive Date: 20040329
  Receipt Date: 20040302
  Transmission Date: 20041129
  Serious: No
  Sender: FDA-Public Use
  Company Number: 20031600

PATIENT

DRUGS (1)
  1. LIORESAL [Suspect]
     Indication: MUSCLE SPASTICITY
     Dosage: MCG,  DAILY, INTRATHECAL
     Route: 037

REACTIONS (1)
  - HEPATITIS [None]
